FAERS Safety Report 12278124 (Version 5)
Quarter: 2017Q1

REPORT INFORMATION
  Report Type: Spontaneous
  Country: US (occurrence: US)
  Receive Date: 20160418
  Receipt Date: 20170322
  Transmission Date: 20170428
  Serious: Yes (Other)
  Sender: FDA-Public Use
  Company Number: US-GLAXOSMITHKLINE-US2016051800

PATIENT
  Age: 57 Year
  Sex: Male

DRUGS (2)
  1. TUMS [Suspect]
     Active Substance: CALCIUM CARBONATE
     Dosage: UNK
  2. TUMS [Suspect]
     Active Substance: CALCIUM CARBONATE
     Indication: DYSPEPSIA
     Dosage: UNK
     Dates: start: 201602, end: 20160414

REACTIONS (3)
  - Nephrolithiasis [Not Recovered/Not Resolved]
  - Pain [Unknown]
  - Accidental overdose [Unknown]

NARRATIVE: CASE EVENT DATE: 20160413
